FAERS Safety Report 6807093-2 (Version None)
Quarter: 2010Q2

REPORT INFORMATION
  Report Type: 
  Country: None (occurrence: None)
  Receive Date: 20100629
  Receipt Date: 20081003
  Transmission Date: 20101027
  Serious: Yes (Other)
  Sender: FDA-Public Use
  Company Number: US-PFIZER INC-2008057557

PATIENT
  Sex: Female
  Weight: 57.272 kg

DRUGS (4)
  1. ARTHROTEC [Suspect]
     Indication: ARTHRITIS
     Dates: start: 20080601, end: 20080601
  2. LEVOXYL [Concomitant]
  3. MULTI-VITAMINS [Concomitant]
  4. ANTIDEPRESSANTS [Concomitant]

REACTIONS (3)
  - ABDOMINAL PAIN [None]
  - CHEST DISCOMFORT [None]
  - VOMITING [None]
